FAERS Safety Report 4707848-4 (Version None)
Quarter: 2005Q3

REPORT INFORMATION
  Report Type: 
  Country: None (occurrence: None)
  Receive Date: 20050701
  Receipt Date: 20050622
  Transmission Date: 20060218
  Serious: Yes (Death)
  Sender: FDA-Public Use
  Company Number: FABR-11129

PATIENT
  Age: 50 Year
  Sex: Male

DRUGS (1)
  1. FABRAZYME [Suspect]
     Indication: FABRY'S DISEASE
     Dates: start: 20020117

REACTIONS (3)
  - DRUG DOSE OMISSION [None]
  - ECONOMIC PROBLEM [None]
  - MYOCARDIAL INFARCTION [None]
